FAERS Safety Report 9385102 (Version 1)
Quarter: 2013Q3

REPORT INFORMATION
  Report Type: Spontaneous
  Country: DE (occurrence: None)
  Receive Date: 20130701
  Receipt Date: 20130701
  Transmission Date: 20140515
  Serious: Yes (Other)
  Sender: FDA-Public Use
  Company Number: GER/GER/13/0030229

PATIENT
  Age: 54 Year
  Sex: Female

DRUGS (2)
  1. CIPROFLOXACIN (CIPROFLOXACIN) [Suspect]
     Indication: STAPHYLOCOCCAL INFECTION
     Dates: start: 20130523, end: 20130603
  2. CLINDAMYCIN 150MG GREENSTONE [Suspect]
     Indication: STAPHYLOCOCCAL INFECTION
     Dates: start: 20130523, end: 20130527

REACTIONS (3)
  - Hypersensitivity vasculitis [None]
  - Oedema peripheral [None]
  - Petechiae [None]
